FAERS Safety Report 6258909-2 (Version None)
Quarter: 2009Q3

REPORT INFORMATION
  Report Type: 
  Country: None (occurrence: None)
  Receive Date: 20090707
  Receipt Date: 20090630
  Transmission Date: 20100115
  Serious: Yes (Hospitalization)
  Sender: FDA-Public Use
  Company Number: US-ASTRAZENECA-2009UW18337

PATIENT
  Age: 56 Year
  Sex: Female

DRUGS (5)
  1. SEROQUEL [Suspect]
     Route: 048
  2. LISINOPRIL [Concomitant]
  3. ZOCOR [Concomitant]
  4. ADVAIR HFA [Concomitant]
  5. ALBUTEROL [Concomitant]

REACTIONS (5)
  - CONFUSIONAL STATE [None]
  - DIZZINESS [None]
  - FALL [None]
  - HYPOTENSION [None]
  - OVERDOSE [None]
